FAERS Safety Report 5891656-5 (Version None)
Quarter: 2008Q3

REPORT INFORMATION
  Report Type: 
  Country: None (occurrence: None)
  Receive Date: 20080922
  Receipt Date: 20080918
  Transmission Date: 20090109
  Serious: Yes (Other)
  Sender: FDA-Public Use
  Company Number: US-BRISTOL-MYERS SQUIBB COMPANY-14157515

PATIENT
  Age: 63 Year
  Sex: Male

DRUGS (7)
  1. BLINDED: APIXABAN [Suspect]
     Indication: THROMBOSIS PROPHYLAXIS
     Route: 048
     Dates: start: 20080318, end: 20080414
  2. BLINDED: ENOXAPARIN [Suspect]
     Indication: THROMBOSIS PROPHYLAXIS
     Route: 058
     Dates: start: 20080316, end: 20080413
  3. BLINDED: PLACEBO [Suspect]
     Indication: THROMBOSIS PROPHYLAXIS
  4. MD-GASTROVIEW [Suspect]
  5. OMNIPAQUE 140 [Suspect]
  6. CARDURA [Concomitant]
  7. LORTAB [Concomitant]
     Dates: start: 20080319

REACTIONS (2)
  - HYPERSENSITIVITY [None]
  - MEDICATION ERROR [None]
